FAERS Safety Report 17608459 (Version 1)
Quarter: 2020Q2

REPORT INFORMATION
  Report Type: Spontaneous
  Country: US (occurrence: US)
  Receive Date: 20200401
  Receipt Date: 20200401
  Transmission Date: 20200713
  Serious: Yes (Other)
  Sender: FDA-Public Use
  Company Number: US-AMGEN-USASP2020051339

PATIENT
  Age: 71 Year
  Sex: Female

DRUGS (2)
  1. VITAMIN D [COLECALCIFEROL] [Concomitant]
     Active Substance: CHOLECALCIFEROL
     Dosage: 50,000 IU, QWK
  2. PROLIA [Suspect]
     Active Substance: DENOSUMAB
     Indication: OSTEOPOROSIS
     Dosage: 60 MILLIGRAM, Q6MO
     Route: 065

REACTIONS (4)
  - Osteonecrosis of jaw [Unknown]
  - Tooth extraction [Unknown]
  - Osteonecrosis [Unknown]
  - Immune system disorder [Unknown]

NARRATIVE: CASE EVENT DATE: 2019
